FAERS Safety Report 7206208-4 (Version None)
Quarter: 2011Q1

REPORT INFORMATION
  Report Type: 
  Country: None (occurrence: None)
  Receive Date: 20110103
  Receipt Date: 20101221
  Transmission Date: 20110831
  Serious: Yes (Death, Hospitalization, Other)
  Sender: FDA-Public Use
  Company Number: US-ELI_LILLY_AND_COMPANY-US201009004556

PATIENT
  Sex: Female

DRUGS (2)
  1. PREDNISONE /00044701/ [Concomitant]
     Indication: MYASTHENIA GRAVIS
  2. FORTEO [Suspect]
     Indication: OSTEOPOROSIS
     Dosage: UNK, UNKNOWN
     Route: 065
     Dates: end: 20100801

REACTIONS (8)
  - LARGE INTESTINE PERFORATION [None]
  - MYASTHENIA GRAVIS CRISIS [None]
  - INFECTION [None]
  - COLOSTOMY [None]
  - DIVERTICULITIS [None]
  - DEATH [None]
  - GASTRIC PERFORATION [None]
  - URTICARIA [None]
